FAERS Safety Report 4863906-5 (Version None)
Quarter: 2005Q4

REPORT INFORMATION
  Report Type: 
  Country: None (occurrence: None)
  Receive Date: 20051219
  Receipt Date: 20051205
  Transmission Date: 20060501
  Serious: Yes (Other)
  Sender: FDA-Public Use
  Company Number: 2005165049

PATIENT
  Sex: Male

DRUGS (9)
  1. DILANTIN [Suspect]
     Indication: ILL-DEFINED DISORDER
  2. METOPROLOL SUCCINATE [Concomitant]
  3. KALETRA [Concomitant]
  4. FUZEON [Concomitant]
  5. TRUVADA (EMTRICITABINE, TENOFOVIR DISORPXIL FUMARATE) [Concomitant]
  6. ANDROGEL [Concomitant]
  7. ZERIG (STAVUDINE) [Concomitant]
  8. VIRAMUNE [Concomitant]
  9. CRIXIVAN [Concomitant]

REACTIONS (1)
  - CONVULSION [None]
